FAERS Safety Report 7582791-4 (Version None)
Quarter: 2011Q2

REPORT INFORMATION
  Report Type: 
  Country: None (occurrence: None)
  Receive Date: 20110627
  Receipt Date: 20110627
  Transmission Date: 20111010
  Serious: No
  Sender: FDA-Public Use
  Company Number: None

PATIENT
  Age: 83 Year
  Sex: Male
  Weight: 74.8435 kg

DRUGS (2)
  1. LEVAQUIN [Suspect]
     Indication: PROPHYLAXIS
     Dosage: 1 DAILY
     Dates: start: 20110617, end: 20110625
  2. LEVAQUIN [Suspect]
     Indication: BRONCHOPNEUMONIA
     Dosage: 1 DAILY
     Dates: start: 20110617, end: 20110625

REACTIONS (2)
  - WEIGHT BEARING DIFFICULTY [None]
  - TENDON DISORDER [None]
